FAERS Safety Report 8909253 (Version 3)
Quarter: 2013Q1

REPORT INFORMATION
  Report Type: Spontaneous
  Country: US (occurrence: None)
  Receive Date: 20121107
  Receipt Date: 20130122
  Transmission Date: 20140127
  Serious: Yes (Death, Hospitalization)
  Sender: FDA-Public Use
  Company Number: 2012-0754

PATIENT
  Age: 66 Year
  Sex: Male

DRUGS (5)
  1. KYPROLIS [Suspect]
     Indication: PLASMA CELL MYELOMA
     Route: 042
     Dates: start: 20120815
  2. FIORICET (CAFFEINE) (CAFFEINE) [Concomitant]
  3. METOPROLOL (METOPROLOL) (TABLET) (METOPROLOL) [Concomitant]
  4. LISINOPRIL (LISINORPIL) (LISINOPRIL) [Concomitant]
  5. DILTIAZEM (DILTIAZEM) (DILTIAZEM) [Concomitant]

REACTIONS (14)
  - Migraine [None]
  - Blood pressure increased [None]
  - Dyskinesia [None]
  - Back pain [None]
  - Musculoskeletal chest pain [None]
  - Musculoskeletal pain [None]
  - Dizziness postural [None]
  - Confusional state [None]
  - Vision blurred [None]
  - Muscular weakness [None]
  - Orthostatic hypotension [None]
  - Hyponatraemia [None]
  - Dehydration [None]
  - Convulsion [None]
